FAERS Safety Report 15891309 (Version 1)
Quarter: 2019Q1

REPORT INFORMATION
  Report Type: Spontaneous
  Country: US (occurrence: US)
  Receive Date: 20190130
  Receipt Date: 20190130
  Transmission Date: 20190417
  Serious: No
  Sender: FDA-Public Use
  Company Number: US-ALLERGAN-1830090US

PATIENT
  Sex: Female

DRUGS (2)
  1. VIIBRYD [Suspect]
     Active Substance: VILAZODONE HYDROCHLORIDE
     Indication: DEPRESSION
     Dosage: 20 MG, QD
     Route: 048
     Dates: start: 201805, end: 201806
  2. ASPIRIN. [Concomitant]
     Active Substance: ASPIRIN
     Indication: SPINAL COLUMN STENOSIS
     Dosage: UNK UNK, UNKNOWN
     Route: 065

REACTIONS (12)
  - Malaise [Recovered/Resolved]
  - Cough [Recovered/Resolved]
  - Chest pain [Recovered/Resolved]
  - Anxiety [Recovered/Resolved]
  - Nervousness [Recovered/Resolved]
  - Depression [Recovered/Resolved]
  - Panic attack [Recovered/Resolved]
  - Insomnia [Recovered/Resolved]
  - Nausea [Recovered/Resolved]
  - Surgery [Recovered/Resolved]
  - Contusion [Recovered/Resolved]
  - Gastrointestinal disorder [Recovered/Resolved]
